FAERS Safety Report 9190772 (Version 1)
Quarter: 2013Q1

REPORT INFORMATION
  Report Type: Spontaneous
  Country: US (occurrence: US)
  Receive Date: 20130326
  Receipt Date: 20130326
  Transmission Date: 20140127
  Serious: Yes (Death)
  Sender: FDA-Public Use
  Company Number: US-PFIZER INC-2013087958

PATIENT
  Age: 102 Year
  Sex: Male

DRUGS (1)
  1. CHAPSTICK CLASSIC ORIGINAL [Suspect]
     Dosage: UNK

REACTIONS (2)
  - Death [Fatal]
  - Unevaluable event [None]
